FAERS Safety Report 12848904 (Version 1)
Quarter: 2016Q4

REPORT INFORMATION
  Report Type: Report from Study
  Country: RU (occurrence: RU)
  Receive Date: 20161014
  Receipt Date: 20161014
  Transmission Date: 20170207
  Serious: Yes (Hospitalization)
  Sender: FDA-Public Use
  Company Number: RU-JNJFOC-20101206693

PATIENT
  Age: 62 Year
  Sex: Male
  Weight: 102 kg

DRUGS (12)
  1. VITAMINE B [Concomitant]
  2. PRESTARIUM [Concomitant]
     Active Substance: PERINDOPRIL
  3. SIMGAL [Concomitant]
  4. ATORVASTATIN [Concomitant]
     Active Substance: ATORVASTATIN
     Indication: DYSLIPIDAEMIA
     Route: 048
  5. PILOCARPINE. [Concomitant]
     Active Substance: PILOCARPINE
     Indication: CATARACT
     Route: 047
  6. METAMIZOLE SODIUM PITOFENONE FENPIVERINIUM BROMIDE [Concomitant]
  7. PLACEBO [Suspect]
     Active Substance: UNSPECIFIED INGREDIENT
     Indication: TYPE 2 DIABETES MELLITUS
     Route: 048
     Dates: start: 20100922, end: 20101130
  8. PECTOROL [Concomitant]
     Indication: ANGINA PECTORIS
     Route: 048
  9. BISOPROLOL [Concomitant]
     Active Substance: BISOPROLOL
     Indication: ANGINA PECTORIS
     Route: 048
  10. PERINDOPRIL [Concomitant]
     Active Substance: PERINDOPRIL
     Indication: HYPERTENSION
     Route: 048
  11. MONOCINQUE [Concomitant]
     Active Substance: ISOSORBIDE MONONITRATE
  12. CONCOR [Concomitant]
     Active Substance: BISOPROLOL FUMARATE

REACTIONS (1)
  - Duodenal ulcer [Recovered/Resolved]

NARRATIVE: CASE EVENT DATE: 20101201
